FAERS Safety Report 18910752 (Version 1)
Quarter: 2021Q1

REPORT INFORMATION
  Report Type: Report from Study
  Country: US (occurrence: US)
  Receive Date: 20210218
  Receipt Date: 20210218
  Transmission Date: 20210420
  Serious: Yes (Hospitalization)
  Sender: FDA-Public Use
  Company Number: US-TEVA-2021-US-1881250

PATIENT
  Age: 61 Year
  Sex: Female

DRUGS (27)
  1. POLYETHYLENE [Concomitant]
     Active Substance: HIGH DENSITY POLYETHYLENE
     Indication: CONSTIPATION
     Dosage: 17 GM,AS REQUIRED
     Route: 048
     Dates: start: 20060201
  2. ONDANSETRON [Concomitant]
     Active Substance: ONDANSETRON
     Indication: NAUSEA
     Route: 048
     Dates: start: 20160219
  3. CARBOPLATIN. [Suspect]
     Active Substance: CARBOPLATIN
     Dosage: AUC 5 DAY 1 OF FOUR 21?DAY CYCLES DURING CHEMOTHERAPY SEGMENT 1
     Route: 042
     Dates: start: 20160408, end: 20160429
  4. PACLITAXEL. [Suspect]
     Active Substance: PACLITAXEL
     Indication: TRIPLE NEGATIVE BREAST CANCER
     Dosage: DAY 1 OF 12 WEEKLY CYCLES DURING CHEMOTHERAPY SEGMENT 1 (80 MG/M2)
     Route: 042
     Dates: start: 20160219, end: 20160506
  5. KEFLEX [Concomitant]
     Active Substance: CEPHALEXIN
     Indication: FOLLICULITIS
     Dosage: 1000 MG (500 MG,2 IN 1 D)
     Route: 048
     Dates: start: 20160311, end: 20160318
  6. ASPIRIN. [Concomitant]
     Active Substance: ASPIRIN
     Indication: CORONARY ARTERY DISEASE
     Dosage: 81 MG (81 MG,1 IN 1D)
     Route: 048
     Dates: start: 20130201
  7. METOPROLOL. [Concomitant]
     Active Substance: METOPROLOL
     Indication: HYPERTENSION
     Dosage: 50 MG (25 MG,2 IN 1 D)
     Route: 048
     Dates: start: 20080201, end: 20160528
  8. ZOLPIDEM [Concomitant]
     Active Substance: ZOLPIDEM TARTRATE
     Indication: PROPHYLAXIS
     Dosage: 5 MILLIGRAM DAILY;
     Route: 048
     Dates: start: 20160226, end: 20160317
  9. ZOLPIDEM [Concomitant]
     Active Substance: ZOLPIDEM TARTRATE
     Indication: INSOMNIA
     Dosage: 10 MILLIGRAM DAILY;
     Route: 048
     Dates: start: 20160318
  10. CYCLOPHOSPHAMIDE. [Suspect]
     Active Substance: CYCLOPHOSPHAMIDE
     Indication: TRIPLE NEGATIVE BREAST CANCER
     Dosage: DAY 1 OF FOUR 14?DAY CYCLES DURING CHEMOTHERAPY SEGMENT 2 (1158 MG,ONCE)
     Route: 042
     Dates: start: 20160520
  11. ABT?888 [Suspect]
     Active Substance: VELIPARIB
     Indication: TRIPLE NEGATIVE BREAST CANCER
     Dosage: 100 MILLIGRAM DAILY;
     Route: 048
     Dates: start: 20160219, end: 20160512
  12. ONDANSETRON [Concomitant]
     Active Substance: ONDANSETRON
     Indication: VOMITING
  13. LISINOPRIL. [Concomitant]
     Active Substance: LISINOPRIL
     Indication: HYPERTENSION
     Dosage: 10 MILLIGRAM DAILY;
     Route: 048
     Dates: start: 20180201
  14. DEXAMETHASONE. [Concomitant]
     Active Substance: DEXAMETHASONE
     Indication: PREMEDICATION
     Route: 048
     Dates: start: 20160227, end: 20160523
  15. DOXORUBICIN [Suspect]
     Active Substance: DOXORUBICIN
     Indication: TRIPLE NEGATIVE BREAST CANCER
     Dosage: DAY 1 OF FOUR 14?DAY CYCLES DURING CHEMOTHERAPY SEGMENT 2 (60 MG/M2)
     Route: 042
     Dates: start: 20160520
  16. ZOLPIDEM [Concomitant]
     Active Substance: ZOLPIDEM TARTRATE
     Indication: FATIGUE
  17. TBO?FILGRASTIM [Concomitant]
     Active Substance: TBO-FILGRASTIM
     Indication: PROPHYLAXIS
     Route: 058
     Dates: start: 20160523, end: 20160530
  18. METOPROLOL TARTATE [Concomitant]
     Active Substance: METOPROLOL TARTRATE
     Indication: HYPERTENSION
     Dosage: 25 MG,2 IN 1 D
     Route: 048
     Dates: start: 20160529
  19. CARBOPLATIN. [Suspect]
     Active Substance: CARBOPLATIN
     Indication: TRIPLE NEGATIVE BREAST CANCER
     Dosage: AUC 6 DAY 1 OF FOUR 21?DAY CYCLES DURING CHEMOTHERAPY SEGMENT 1
     Route: 042
     Dates: start: 20160219, end: 20160311
  20. BUPROPION. [Concomitant]
     Active Substance: BUPROPION
     Indication: DEPRESSION
     Dosage: 150 MG (150 MG,1 IN 1 D)
     Route: 048
     Dates: start: 20130201, end: 20160318
  21. FLUTICASONE. [Concomitant]
     Active Substance: FLUTICASONE
     Indication: HYPERSENSITIVITY
     Dosage: (50 MCG,AS REQUIRED
     Route: 045
     Dates: start: 20060201
  22. MELATONIN [Concomitant]
     Active Substance: MELATONIN
     Indication: INSOMNIA
     Route: 048
     Dates: start: 20151101, end: 20160430
  23. ATORVASTATIN [Concomitant]
     Active Substance: ATORVASTATIN
     Indication: BLOOD CHOLESTEROL INCREASED
     Dosage: 80 MG (80 MG,1 IN 1D)
     Route: 048
     Dates: start: 20080201
  24. OMEPRAZOLE. [Concomitant]
     Active Substance: OMEPRAZOLE
     Indication: GASTROOESOPHAGEAL REFLUX DISEASE
     Dosage: 20 MG,1 IN 1 D
     Route: 048
     Dates: start: 20000201
  25. DEXAMETHASONE. [Concomitant]
     Active Substance: DEXAMETHASONE
     Indication: NAUSEA
  26. FLUCONAZOLE. [Concomitant]
     Active Substance: FLUCONAZOLE
     Indication: VAGINAL INFECTION
     Dosage: 2 DAY COURSE: 1 TAB BY MOUTH ON DAY 1, THEN AGAIN ON DAY 4 (150 MG)
     Route: 048
     Dates: start: 20160401, end: 20160404
  27. NORCO [Concomitant]
     Active Substance: ACETAMINOPHEN\HYDROCODONE BITARTRATE
     Indication: NEUROPATHY PERIPHERAL
     Dosage: 5?325MG (AS REQUIRED)
     Route: 048
     Dates: start: 20160408

REACTIONS (2)
  - Urinary tract infection [Recovered/Resolved]
  - Febrile neutropenia [Recovered/Resolved]

NARRATIVE: CASE EVENT DATE: 20160528
